FAERS Safety Report 21274237 (Version 1)
Quarter: 2022Q3

REPORT INFORMATION
  Report Type: Spontaneous
  Country: US (occurrence: None)
  Receive Date: 20220830
  Receipt Date: 20220830
  Transmission Date: 20221027
  Serious: Yes (Other)
  Sender: FDA-Public Use
  Company Number: None

PATIENT
  Sex: Male
  Weight: 72 kg

DRUGS (3)
  1. TREMFYA [Suspect]
     Active Substance: GUSELKUMAB
     Indication: Psoriasis
     Dosage: OTHER FREQUENCY : INITIAL DOSE;?
     Route: 058
     Dates: start: 20220812
  2. clobetasol 0.05% external cream [Concomitant]
  3. clobetasol external solution 0.05% [Concomitant]

REACTIONS (2)
  - Abdominal pain [None]
  - Food poisoning [None]
